FAERS Safety Report 9522501 (Version 1)
Quarter: 2013Q1

REPORT INFORMATION
  Report Type: Spontaneous
  Country: US (occurrence: None)
  Receive Date: 20130305
  Receipt Date: 20130305
  Transmission Date: 20140127
  Serious: Yes (Other)
  Sender: FDA-Public Use
  Company Number: 163-21880-12063676

PATIENT
  Age: 75 Year
  Sex: Female

DRUGS (1)
  1. REVLIMID (LENALIDOMIDE) (CAPSULES) [Suspect]
     Dosage: 25 MG, 14 IN 21 D, PO
     Route: 048
     Dates: start: 20120614

REACTIONS (4)
  - Constipation [None]
  - Local swelling [None]
  - Pain in jaw [None]
  - Back pain [None]
